FAERS Safety Report 6044042-1 (Version None)
Quarter: 2009Q1

REPORT INFORMATION
  Report Type: 
  Country: None (occurrence: None)
  Receive Date: 20090120
  Receipt Date: 20090120
  Transmission Date: 20090719
  Serious: Yes (Other)
  Sender: FDA-Public Use
  Company Number: US-JNJFOC-20090104216

PATIENT
  Age: 40 Year
  Sex: Female

DRUGS (2)
  1. KETOCONAZOLE [Suspect]
     Indication: SEBORRHOEIC DERMATITIS
     Route: 061
  2. FLUOCINONIDE [Suspect]
     Indication: SEBORRHOEIC DERMATITIS
     Route: 061

REACTIONS (1)
  - KERATOPATHY [None]
